FAERS Safety Report 8418855-2 (Version None)
Quarter: 2012Q2

REPORT INFORMATION
  Report Type: 
  Country: None (occurrence: None)
  Receive Date: 20120530
  Receipt Date: 20120521
  Transmission Date: 20120825
  Serious: Yes (Hospitalization)
  Sender: FDA-Public Use
  Company Number: WAES 1102USA00607

PATIENT
  Age: 84 Year
  Sex: Female

DRUGS (10)
  1. CANDESARTAN CILEXETIL [Concomitant]
  2. JANUVIA [Suspect]
     Indication: TYPE 2 DIABETES MELLITUS
     Dosage: 50 MG/DAILY/PO
     Route: 048
     Dates: start: 20110113, end: 20110121
  3. MIYA BM [Concomitant]
  4. GASCON [Concomitant]
  5. NORVASC [Concomitant]
  6. MAGLAX [Concomitant]
  7. RABEPRAZOLE SODIUM [Concomitant]
  8. AMLODIPINE BESYLATE [Concomitant]
  9. TRICHLORMETHIAZIDE [Concomitant]
  10. GASMOTIN [Concomitant]

REACTIONS (5)
  - DRUG-INDUCED LIVER INJURY [None]
  - BILIARY DILATATION [None]
  - VOMITING [None]
  - DECREASED APPETITE [None]
  - GALLBLADDER ENLARGEMENT [None]
